FAERS Safety Report 8110896 (Version 3)
Quarter: 2014Q4

REPORT INFORMATION
  Report Type: Spontaneous
  Country: GB (occurrence: None)
  Receive Date: 20110817
  Receipt Date: 20141103
  Transmission Date: 20150529
  Serious: Yes (Other)
  Sender: FDA-Public Use
  Company Number: 2011GB0229

PATIENT
  Age: 29 Year
  Sex: Female

DRUGS (22)
  1. ACYCLOVIR. [Concomitant]
     Active Substance: ACYCLOVIR
  2. TAZOCIN [Concomitant]
     Active Substance: PIPERACILLIN SODIUM\TAZOBACTAM SODIUM
  3. CYCLICINE [Concomitant]
  4. ACYCLOVIR. [Concomitant]
     Active Substance: ACYCLOVIR
  5. ITRACONAZOLE. [Concomitant]
     Active Substance: ITRACONAZOLE
  6. NYSTATIN. [Concomitant]
     Active Substance: NYSTATIN
  7. NORETHISTERONE (NORETHISTERONE) [Concomitant]
     Active Substance: NORETHINDRONE
  8. CODEINE SULFATE. [Concomitant]
     Active Substance: CODEINE SULFATE
  9. PIPERACILLIN AND TAZOBACTAM [Concomitant]
     Active Substance: PIPERACILLIN SODIUM\TAZOBACTAM SODIUM
  10. ONDANSETRON [Concomitant]
     Active Substance: ONDANSETRON
  11. ACETAMINOPHEN. [Concomitant]
     Active Substance: ACETAMINOPHEN
  12. ALLOPURINOL. [Concomitant]
     Active Substance: ALLOPURINOL
  13. TEICOPLANIN [Concomitant]
     Active Substance: TEICOPLANIN
  14. CHLORHEXIDINE GLUCONATE. [Concomitant]
     Active Substance: CHLORHEXIDINE GLUCONATE
  15. PALIFERMIN [Suspect]
     Active Substance: PALIFERMIN
     Indication: STOMATITIS
     Dosage: (4.3 MG, PER PROTOCOL) INTRAVENOUS
     Route: 042
     Dates: start: 20110717, end: 20110730
  16. ITRACONAZOLE. [Concomitant]
     Active Substance: ITRACONAZOLE
  17. DIFFLAM (BENZYDAMINE HYDROCHLORIDE) [Concomitant]
  18. CICLOSPORIN (CICLOSPORIN) [Concomitant]
     Active Substance: CYCLOSPORINE
  19. ONCASPAR [Suspect]
     Active Substance: PEGASPARGASE
     Dosage: (1725 IU, D4+18) INTRAVENOUS
     Route: 042
     Dates: start: 20110321, end: 20110404
  20. ENOXAPARIN SODIUM. [Concomitant]
     Active Substance: ENOXAPARIN SODIUM
  21. BENZOCAINE + CODEINE MOUTHWASH (BENZOCAINE, CODEIN) [Concomitant]
  22. MORPHINE SULPHATE [Concomitant]
     Active Substance: MORPHINE SULFATE

REACTIONS (4)
  - Mucosal inflammation [None]
  - Hyperbilirubinaemia [None]
  - Pyrexia [None]
  - Oral pain [None]

NARRATIVE: CASE EVENT DATE: 20110731
